FAERS Safety Report 21943914 (Version 1)
Quarter: 2023Q1

REPORT INFORMATION
  Report Type: Spontaneous
  Country: US (occurrence: US)
  Receive Date: 20230202
  Receipt Date: 20230202
  Transmission Date: 20230417
  Serious: Yes (Life-Threatening, Hospitalization, Other)
  Sender: FDA-Public Use
  Company Number: US-MLMSERVICE-2023011940497291

PATIENT
  Age: 58 Year
  Sex: Female

DRUGS (1)
  1. ATORVASTATIN [Suspect]
     Active Substance: ATORVASTATIN
     Indication: Hyperlipidaemia
     Dosage: STRENGTH: 40 MG

REACTIONS (3)
  - Pneumonitis aspiration [Recovering/Resolving]
  - Dysphagia [Recovering/Resolving]
  - Immune-mediated myositis [Recovering/Resolving]
